FAERS Safety Report 20519697 (Version 3)
Quarter: 2022Q1

REPORT INFORMATION
  Report Type: Spontaneous
  Country: JP (occurrence: JP)
  Receive Date: 20220225
  Receipt Date: 20220308
  Transmission Date: 20220423
  Serious: Yes (Hospitalization, Other)
  Sender: FDA-Public Use
  Company Number: JP-GLAXOSMITHKLINE-JP2022JPN031628

PATIENT
  Age: 62 Year
  Sex: Female
  Weight: 47.2 kg

DRUGS (9)
  1. TRELEGY ELLIPTA [Suspect]
     Active Substance: FLUTICASONE FUROATE\UMECLIDINIUM BROMIDE\VILANTEROL TRIFENATATE
     Indication: Asthma
     Dosage: 100 ?G
  2. TRELEGY ELLIPTA [Suspect]
     Active Substance: FLUTICASONE FUROATE\UMECLIDINIUM BROMIDE\VILANTEROL TRIFENATATE
     Dosage: 200 ?G
  3. TRELEGY ELLIPTA [Suspect]
     Active Substance: FLUTICASONE FUROATE\UMECLIDINIUM BROMIDE\VILANTEROL TRIFENATATE
     Dosage: 100 ?G, QD, 1 INHALATION
     Route: 055
     Dates: start: 20210517, end: 20211125
  4. TRELEGY ELLIPTA [Suspect]
     Active Substance: FLUTICASONE FUROATE\UMECLIDINIUM BROMIDE\VILANTEROL TRIFENATATE
     Dosage: 200 ?G, QD, 1 INHALATION
     Route: 055
     Dates: start: 20211125
  5. CONIEL TABLETS (BENIDIPINE HYDROCHLORIDE) [Concomitant]
     Indication: Hypertension
     Dosage: 1 DF, QD, 1 T IN THE MORNING
     Dates: start: 20210315
  6. ACTONEL TABLETS [Concomitant]
     Indication: Osteoporosis
     Dosage: UNK, WE
     Route: 048
     Dates: start: 2017
  7. ZETIA TABLETS [Concomitant]
     Indication: Hyperlipidaemia
     Dosage: UNK, QD, IN THE MORNING
     Route: 048
     Dates: start: 2017
  8. ALFAROL CAPSULE [Concomitant]
     Indication: Osteoporosis
     Dosage: UNK, QD, IN THE MORNING
     Route: 048
     Dates: start: 20210315
  9. NEXIUM [Concomitant]
     Active Substance: ESOMEPRAZOLE MAGNESIUM
     Indication: Gastrooesophageal reflux disease
     Dosage: UNK, QD, IN THE EVENING
     Route: 048
     Dates: start: 20210520

REACTIONS (2)
  - Blood corticotrophin decreased [Unknown]
  - Adrenal insufficiency [Unknown]

NARRATIVE: CASE EVENT DATE: 20211125
